FAERS Safety Report 7618278-X (Version None)
Quarter: 2011Q3

REPORT INFORMATION
  Report Type: 
  Country: None (occurrence: None)
  Receive Date: 20110718
  Receipt Date: 20110714
  Transmission Date: 20111222
  Serious: Yes (Hospitalization)
  Sender: FDA-Public Use
  Company Number: BR-ROCHE-648171

PATIENT
  Sex: Female
  Weight: 43.6 kg

DRUGS (11)
  1. SIMVASTATIN [Concomitant]
     Dosage: DRUG NAME: SINVASTATIN.
     Dates: start: 20090710
  2. CAPTOPRIL [Concomitant]
     Dates: start: 20090515
  3. HYDROXYCHLOROQUINE SULFATE [Concomitant]
     Dosage: DRUG NAME: HYDROXICHLOROQUINE
     Dates: start: 20090515
  4. CALCIUM CARBONATE [Concomitant]
     Dates: start: 20090610
  5. MYCOPHENOLATE MOFETIL [Suspect]
     Route: 065
     Dates: start: 20090625, end: 20090804
  6. OCRELIZUMAB [Suspect]
     Indication: LUPUS NEPHRITIS
     Dosage: FREQUENCY: DAY 1 AND DAY 15 FORM: INFUSION
     Route: 042
     Dates: start: 20090610, end: 20090624
  7. ACETAMINOPHEN [Concomitant]
     Dates: start: 20090703
  8. FUROSEMIDE [Concomitant]
     Dates: start: 20090515
  9. PROPRANOLOL [Concomitant]
     Dates: start: 20090518
  10. VITAMIN D [Concomitant]
     Dosage: DRUG NAME: D3 VITAMIN
     Dates: start: 20090610
  11. PREDNISONE [Concomitant]
     Dates: start: 20090804

REACTIONS (1)
  - FEBRILE NEUTROPENIA [None]
